FAERS Safety Report 4441805-0 (Version None)
Quarter: 2004Q3

REPORT INFORMATION
  Report Type: 
  Country: None (occurrence: None)
  Receive Date: 20040901
  Receipt Date: 20040816
  Transmission Date: 20050211
  Serious: Yes (Life-Threatening, Hospitalization)
  Sender: FDA-Public Use
  Company Number: DSA_24467_2004

PATIENT
  Age: 65 Year
  Sex: Male
  Weight: 50.9979 kg

DRUGS (12)
  1. RENIVACE [Suspect]
     Indication: CARDIAC FAILURE
     Dosage: 5 MG BID PO
     Route: 048
     Dates: start: 20040322, end: 20040518
  2. PANALDINE [Suspect]
     Indication: CORONARY ARTERIAL STENT INSERTION
     Dosage: 100 MG BID PO
     Route: 048
     Dates: start: 20040421, end: 20040518
  3. WARFARIN SODIUM [Suspect]
     Indication: CARDIAC FAILURE
     Dosage: 1 TAB Q DAY PO
     Route: 048
     Dates: start: 20040423, end: 20040526
  4. ZYLORIC ^FAES^ [Suspect]
     Indication: HYPERURICAEMIA
     Dosage: 100 MG Q DAY PO
     Route: 048
     Dates: start: 20040429, end: 20040518
  5. 8-HOUR BAYER [Concomitant]
  6. LASIX [Concomitant]
  7. CARVEDILOL [Concomitant]
  8. ALDACTONE-A [Concomitant]
  9. PARIET [Concomitant]
  10. SELBEX [Concomitant]
  11. BIOFERMIN R [Concomitant]
  12. MEXITIL [Concomitant]

REACTIONS (11)
  - AGRANULOCYTOSIS [None]
  - BASOPHIL PERCENTAGE INCREASED [None]
  - BLOOD PRESSURE DECREASED [None]
  - HAEMATOCRIT DECREASED [None]
  - HAEMOGLOBIN DECREASED [None]
  - INTERSTITIAL LUNG DISEASE [None]
  - LYMPHOCYTE PERCENTAGE INCREASED [None]
  - LYMPHOCYTE STIMULATION TEST POSITIVE [None]
  - MONOCYTE PERCENTAGE INCREASED [None]
  - RED BLOOD CELL COUNT DECREASED [None]
  - RENAL FAILURE [None]
